FAERS Safety Report 5777217-7 (Version None)
Quarter: 2008Q2

REPORT INFORMATION
  Report Type: 
  Country: None (occurrence: None)
  Receive Date: 20080616
  Receipt Date: 20080530
  Transmission Date: 20081010
  Serious: Yes (Hospitalization, Other)
  Sender: FDA-Public Use
  Company Number: 2006BI012381

PATIENT
  Age: 41 Year
  Sex: Female

DRUGS (1)
  1. AVONEX [Suspect]
     Indication: MULTIPLE SCLEROSIS
     Dosage: 30 UG; QW; IM
     Route: 030
     Dates: start: 19970901, end: 20030301

REACTIONS (10)
  - CAESAREAN SECTION [None]
  - CATHETER RELATED INFECTION [None]
  - DIABETES MELLITUS [None]
  - DRUG EXPOSURE DURING PREGNANCY [None]
  - ESCHERICHIA INFECTION [None]
  - HELLP SYNDROME [None]
  - HEPATITIS [None]
  - PRE-ECLAMPSIA [None]
  - PREMATURE LABOUR [None]
  - RENAL FAILURE [None]
